FAERS Safety Report 6509194-5 (Version None)
Quarter: 2009Q4

REPORT INFORMATION
  Report Type: 
  Country: None (occurrence: None)
  Receive Date: 20091221
  Receipt Date: 20090123
  Transmission Date: 20100525
  Serious: No
  Sender: FDA-Public Use
  Company Number: US-TYCO HEALTHCARE/MALLINCKRODT-T200900110

PATIENT
  Sex: Male

DRUGS (3)
  1. ULTRA-TECHNEKOW [Suspect]
     Indication: RADIOISOTOPE SCAN
     Dosage: UNK
     Dates: start: 20090120, end: 20090120
  2. OPTIRAY 350 [Suspect]
     Dosage: UNK
     Dates: start: 20090120, end: 20090120
  3. TECHNESCAN MDP [Suspect]
     Indication: RADIOISOTOPE SCAN
     Dosage: UNK
     Dates: start: 20090120, end: 20090120

REACTIONS (2)
  - PRURITUS [None]
  - RASH [None]
